FAERS Safety Report 15678015 (Version 1)
Quarter: 2018Q4

REPORT INFORMATION
  Report Type: Spontaneous
  Country: FR (occurrence: FR)
  Receive Date: 20181130
  Receipt Date: 20181130
  Transmission Date: 20190205
  Serious: Yes (Other)
  Sender: FDA-Public Use
  Company Number: FR-AUROBINDO-AUR-APL-2018-057516

PATIENT
  Age: 35 Year
  Sex: Female

DRUGS (2)
  1. PREDNISONE TABLET [Suspect]
     Active Substance: PREDNISONE
     Indication: INFERTILITY FEMALE
     Dosage: 15 MILLIGRAM, DAILY
     Route: 065
  2. HYDROXYCHLOROQUINE SULFATE. [Suspect]
     Active Substance: HYDROXYCHLOROQUINE SULFATE
     Indication: INFERTILITY FEMALE
     Dosage: 400 MILLIGRAM, DAILY
     Route: 065

REACTIONS (4)
  - Exposure during pregnancy [Unknown]
  - Off label use [Unknown]
  - Intentional product use issue [Unknown]
  - Abortion spontaneous [Unknown]
